FAERS Safety Report 8910120 (Version 1)
Quarter: 2012Q4

REPORT INFORMATION
  Report Type: 
  Country: DE (occurrence: ES)
  Receive Date: 20121115
  Receipt Date: 20121115
  Transmission Date: 20130627
  Serious: Yes (Hospitalization)
  Sender: FDA-Public Use
  Company Number: ES-BRISTOL-MYERS SQUIBB COMPANY-17115965

PATIENT
  Age: 80 Year
  Sex: Female

DRUGS (6)
  1. METFORMIN HCL [Suspect]
     Indication: TYPE 2 DIABETES MELLITUS
     Route: 048
     Dates: start: 20111104, end: 20120409
  2. EUTHYROX [Suspect]
     Indication: HYPOTHYROIDISM
     Route: 048
     Dates: start: 20120423
  3. SEROXAT [Suspect]
     Indication: DEPRESSION
     Dosage: film coated tablet
     Route: 048
     Dates: start: 20120402, end: 20120409
  4. PLAVIX [Concomitant]
     Indication: PROPHYLAXIS
     Route: 048
     Dates: start: 2001, end: 2012
  5. NOCTAMID [Concomitant]
     Indication: INSOMNIA
     Route: 048
     Dates: start: 2002, end: 2012
  6. SERETIDE [Concomitant]
     Indication: CHRONIC OBSTRUCTIVE PULMONARY DISEASE
     Dosage: 1 Df:2 plaster
     Route: 055
     Dates: start: 2002, end: 2012

REACTIONS (1)
  - Pancreatitis acute [Recovered/Resolved]
